FAERS Safety Report 4331559-0 (Version None)
Quarter: 2004Q1

REPORT INFORMATION
  Report Type: 
  Country: None (occurrence: None)
  Receive Date: 20040329
  Receipt Date: 20040112
  Transmission Date: 20041129
  Serious: Yes (Death, Life-Threatening, Hospitalization)
  Sender: FDA-Public Use
  Company Number: 2004UW05083

PATIENT
  Age: 71 Year
  Sex: Male

DRUGS (5)
  1. CRESTOR [Suspect]
     Dosage: 10 MG PO
     Route: 048
     Dates: start: 20031103
  2. NORVASC [Concomitant]
  3. ATENOLOL [Concomitant]
  4. VIOXX [Concomitant]
  5. PREVACID [Concomitant]

REACTIONS (5)
  - ARRHYTHMIA [None]
  - ATHEROSCLEROSIS [None]
  - CARDIO-RESPIRATORY ARREST [None]
  - ERUCTATION [None]
  - FEELING COLD [None]
